FAERS Safety Report 16893777 (Version 15)
Quarter: 2021Q4

REPORT INFORMATION
  Report Type: Spontaneous
  Country: US (occurrence: US)
  Receive Date: 20191008
  Receipt Date: 20211125
  Transmission Date: 20220303
  Serious: Yes (Other)
  Sender: FDA-Public Use
  Company Number: US-PFIZER INC-2019430480

PATIENT
  Age: 74 Year
  Sex: Female
  Weight: 78 kg

DRUGS (3)
  1. LYRICA [Suspect]
     Active Substance: PREGABALIN
     Indication: Nerve injury
     Dosage: 300 MG, 2X/DAY
     Route: 048
  2. LYRICA [Suspect]
     Active Substance: PREGABALIN
     Indication: Herpes zoster
     Dosage: 300 MG, DAILY [TAKE 1 CAP A DAY FOR 90 DAYS]
     Route: 048
  3. LYRICA [Suspect]
     Active Substance: PREGABALIN
     Indication: Post herpetic neuralgia
     Dosage: 300 MG, 2X/DAY
     Route: 048

REACTIONS (5)
  - Neoplasm malignant [Recovering/Resolving]
  - Depression [Recovering/Resolving]
  - Illness [Unknown]
  - Lung disorder [Unknown]
  - Blister [Unknown]
